FAERS Safety Report 5830004-3 (Version None)
Quarter: 2008Q3

REPORT INFORMATION
  Report Type: 
  Country: None (occurrence: None)
  Receive Date: 20080731
  Receipt Date: 20080731
  Transmission Date: 20090109
  Serious: No
  Sender: FDA-Public Use
  Company Number: None

PATIENT
  Age: 57 Year
  Sex: Female
  Weight: 79.8331 kg

DRUGS (1)
  1. KETOROLAC TROMETHAMINE [Suspect]
     Indication: PAIN
     Dosage: ONE TABLET  FOUR TIMES DAILY PO
     Route: 048
     Dates: start: 20080608, end: 20080609

REACTIONS (2)
  - ABDOMINAL PAIN UPPER [None]
  - DIARRHOEA [None]
